FAERS Safety Report 8940849 (Version 1)
Quarter: 2012Q4

REPORT INFORMATION
  Report Type: Report from Study
  Country: GB (occurrence: FR)
  Receive Date: 20121203
  Receipt Date: 20121203
  Transmission Date: 20130627
  Serious: Yes (Hospitalization)
  Sender: FDA-Public Use
  Company Number: FR-EISAI INC-E7389-03283-CLI-GB

PATIENT
  Age: 57 Year
  Sex: Male
  Weight: 90 kg

DRUGS (23)
  1. E7389 (BOLD) [Suspect]
     Indication: NON-SMALL CELL LUNG CANCER
     Route: 041
     Dates: start: 20120913
  2. LOSARTAN [Concomitant]
     Indication: IHD
     Route: 048
  3. NYSTATIN [Concomitant]
     Route: 048
     Dates: start: 20121113, end: 20121121
  4. MORPHINE SULPHATE MR [Concomitant]
     Indication: PAIN
     Route: 048
     Dates: start: 201205
  5. DIFFLAM [Concomitant]
     Route: 048
     Dates: start: 20121112
  6. ENOXAPARIN [Concomitant]
     Indication: PROPHYLAXIS
     Route: 058
     Dates: start: 20121113, end: 20121120
  7. TAZOCIN [Concomitant]
     Indication: INFECTION
     Route: 042
     Dates: start: 20121113, end: 20121115
  8. MEROPENEM [Concomitant]
     Indication: INFECTION
     Route: 042
     Dates: start: 20121115, end: 20121119
  9. MEROPENEM [Concomitant]
     Indication: SEPSIS
  10. LANSOPRAZOLE [Concomitant]
     Indication: PROPHYLAXIS
     Route: 048
     Dates: start: 20121114
  11. ASPIRIN [Concomitant]
     Indication: PROPHYLAXIS
     Route: 048
     Dates: start: 20121114
  12. SERTRALINE [Concomitant]
     Dates: start: 20121114
  13. CALCICHEW D3 FORTE [Concomitant]
     Indication: OSTEOPOROSIS
     Route: 048
  14. ORAMORPH [Concomitant]
     Indication: PAIN
     Dosage: 5-10 MG
     Route: 048
     Dates: start: 20121003
  15. ORAMORPH [Concomitant]
     Indication: DYSPNEA
  16. ZOPICLONE [Concomitant]
     Indication: SEDATION
     Route: 048
     Dates: start: 20121113
  17. METOCLOPRAMIDE [Concomitant]
     Indication: NAUSEA
     Dosage: 10-20 MG
     Route: 048
     Dates: start: 20121113
  18. ONDANSETRON [Concomitant]
     Indication: NAUSEA
     Dosage: 4-8 MG
     Route: 048
     Dates: start: 20121120
  19. MOVICOL [Concomitant]
     Indication: CONSTIPATION
     Dosage: 1-2 DOSES
     Route: 048
     Dates: start: 20121114
  20. INSULIN SUB-CUT PUMP [Concomitant]
     Route: 058
  21. CHLORHEXIOLINE [Concomitant]
     Route: 048
     Dates: start: 20121112, end: 20121121
  22. CYCLIZINE [Concomitant]
     Route: 048
     Dates: start: 20121114, end: 20121121
  23. NORMAL SALINE [Concomitant]
     Route: 042
     Dates: start: 20121113, end: 20121114

REACTIONS (3)
  - Neutropenia [Recovered/Resolved]
  - Candidiasis [Recovered/Resolved]
  - Night sweats [Recovering/Resolving]
